FAERS Safety Report 9285628 (Version 1)
Quarter: 2013Q2

REPORT INFORMATION
  Report Type: Spontaneous
  Country: US (occurrence: None)
  Receive Date: 20130510
  Receipt Date: 20130510
  Transmission Date: 20140414
  Serious: Yes (Other)
  Sender: FDA-Public Use
  Company Number: None

PATIENT
  Age: 33 Year
  Sex: Female
  Weight: 120.66 kg

DRUGS (1)
  1. LEXAPRO [Suspect]
     Indication: PANIC DISORDER
     Route: 048

REACTIONS (2)
  - Feeling abnormal [None]
  - Product substitution issue [None]
